FAERS Safety Report 18755435 (Version 1)
Quarter: 2021Q1

REPORT INFORMATION
  Report Type: Spontaneous
  Country: US (occurrence: US)
  Receive Date: 20210115
  Receipt Date: 20210115
  Transmission Date: 20210419
  Serious: Yes (Other)
  Sender: FDA-Public Use
  Company Number: None

PATIENT
  Age: 71 Year
  Sex: Male
  Weight: 76.5 kg

DRUGS (8)
  1. TURMERIC [Concomitant]
     Active Substance: HERBALS\TURMERIC
  2. FISH OIL [Concomitant]
     Active Substance: FISH OIL
  3. PRAVASTATIN. [Concomitant]
     Active Substance: PRAVASTATIN
  4. VIT B [Concomitant]
     Active Substance: VITAMIN B
  5. LEVOTHYROXIN FOR THYROID [Concomitant]
  6. L?GLUTAMINE [Concomitant]
  7. FLUOROURACIL CREAM [Suspect]
     Active Substance: FLUOROURACIL
     Indication: ACTINIC KERATOSIS
     Dosage: ?          QUANTITY:40 GRAM;?
     Route: 061
     Dates: start: 20201130, end: 20201220
  8. AMITRIPTYLINE [Concomitant]
     Active Substance: AMITRIPTYLINE

REACTIONS (5)
  - Erythema [None]
  - Pruritus [None]
  - Skin burning sensation [None]
  - Skin exfoliation [None]
  - Sleep disorder [None]

NARRATIVE: CASE EVENT DATE: 20201225
